FAERS Safety Report 24439906 (Version 1)
Quarter: 2024Q4

REPORT INFORMATION
  Report Type: Spontaneous
  Country: US (occurrence: US)
  Receive Date: 20241015
  Receipt Date: 20241015
  Transmission Date: 20250114
  Serious: No
  Sender: BRACCO
  Company Number: US-BRACCO-2024US04666

PATIENT
  Age: 73 Year
  Sex: Male

DRUGS (12)
  1. VUEWAY [Suspect]
     Active Substance: GADOPICLENOL
     Indication: Magnetic resonance imaging abdominal
     Dosage: UNK, SINGLE
     Route: 042
     Dates: start: 20240726, end: 20240726
  2. ALLOPURINOL [Concomitant]
     Active Substance: ALLOPURINOL
     Dosage: 200 MG, QD
     Route: 048
     Dates: start: 20220307
  3. ASCORBIC ACID [Concomitant]
     Active Substance: ASCORBIC ACID
     Dosage: 1000 MG, QD
     Route: 048
     Dates: start: 20221011
  4. ASPIRIN [Concomitant]
     Active Substance: ASPIRIN
     Dosage: 81 MG, QD
     Route: 048
     Dates: start: 20220307
  5. BIOTIN [Concomitant]
     Active Substance: BIOTIN
     Dosage: 10000 MCG
     Route: 048
     Dates: start: 20240618
  6. DORZOLAMIDE [Concomitant]
     Active Substance: DORZOLAMIDE
     Dosage: 1 DROP, BID
     Route: 047
     Dates: start: 20240415
  7. LATANOPROST [Concomitant]
     Active Substance: LATANOPROST
     Dosage: 1 DROP, QD
     Route: 047
     Dates: start: 20220307
  8. METOPROLOL TARTRATE [Concomitant]
     Active Substance: METOPROLOL TARTRATE
     Dosage: 25 MG, BID
     Route: 048
     Dates: start: 20240724
  9. VITAMINS [Concomitant]
     Active Substance: VITAMINS
     Dosage: 1 TOTAL, QD
     Route: 048
     Dates: start: 20220307
  10. DIETARY SUPPLEMENT\UBIDECARENONE [Concomitant]
     Active Substance: DIETARY SUPPLEMENT\UBIDECARENONE
     Dosage: 100 MG, QD
     Route: 048
     Dates: start: 20220307
  11. VITAMIN D3 [Concomitant]
     Active Substance: CHOLECALCIFEROL
     Dosage: 125 MCG, QD
     Route: 048
     Dates: start: 20220505
  12. ZINC ACETATE [Concomitant]
     Active Substance: ZINC ACETATE
     Dosage: 25 MG, QD
     Route: 048

REACTIONS (1)
  - Hypersensitivity [Recovered/Resolved]

NARRATIVE: CASE EVENT DATE: 20240726
